FAERS Safety Report 4763655-8 (Version None)
Quarter: 2005Q3

REPORT INFORMATION
  Report Type: 
  Country: None (occurrence: None)
  Receive Date: 20050901
  Receipt Date: 20050520
  Transmission Date: 20060218
  Serious: No
  Sender: FDA-Public Use
  Company Number: 200510336BWH

PATIENT
  Age: 69 Year
  Sex: Male

DRUGS (8)
  1. LEVITRA [Suspect]
     Indication: ERECTILE DYSFUNCTION
     Dosage: 10 MG ONCE ORAL
     Route: 048
     Dates: start: 20040501, end: 20040101
  2. VIAGRA [Concomitant]
  3. LOTREL [Concomitant]
  4. ASPIRIN [Concomitant]
  5. VITAMIN CAP [Concomitant]
  6. OMEGA 500 [Concomitant]
  7. LOTREL [Concomitant]
  8. MEVACOR [Concomitant]

REACTIONS (7)
  - ANAEMIA [None]
  - GENITAL HAEMORRHAGE [None]
  - HAEMOGLOBIN DECREASED [None]
  - HYPERTENSION [None]
  - MUSCLE STRAIN [None]
  - PENILE HAEMORRHAGE [None]
  - VASCULAR RUPTURE [None]
